FAERS Safety Report 11440067 (Version 1)
Quarter: 2015Q3

REPORT INFORMATION
  Report Type: Spontaneous
  Country: US (occurrence: US)
  Receive Date: 20150901
  Receipt Date: 20150901
  Transmission Date: 20151125
  Serious: No
  Sender: FDA-Public Use
  Company Number: US-ROCHE-1052760

PATIENT
  Sex: Male

DRUGS (3)
  1. INCIVEK [Suspect]
     Active Substance: TELAPREVIR
     Indication: CHRONIC HEPATITIS C
     Dosage: FOR INITIAL 12 WEEK LENGTH OF THERAPY
     Route: 065
     Dates: start: 20120319, end: 20120611
  2. RIBAVIRIN. [Suspect]
     Active Substance: RIBAVIRIN
     Indication: CHRONIC HEPATITIS C
     Dosage: IN DIVIDED DOSES, FOR INITIAL 12 WEEK LENGTH OF THERAPY
     Route: 048
     Dates: start: 20120319
  3. PEGASYS [Suspect]
     Active Substance: PEGINTERFERON ALFA-2A
     Indication: CHRONIC HEPATITIS C
     Dosage: FOR INITIAL 12 WEEK LENGTH OF THERAPY
     Route: 058
     Dates: start: 20120319

REACTIONS (6)
  - Diarrhoea [Unknown]
  - Nausea [Unknown]
  - Fatigue [Unknown]
  - Muscle spasms [Unknown]
  - Peripheral coldness [Unknown]
  - Vomiting [Unknown]
